FAERS Safety Report 19933052 (Version 1)
Quarter: 2021Q4

REPORT INFORMATION
  Report Type: Spontaneous
  Country: GR (occurrence: GR)
  Receive Date: 20211008
  Receipt Date: 20211008
  Transmission Date: 20220303
  Serious: Yes (Other)
  Sender: FDA-Public Use
  Company Number: None

PATIENT
  Age: 41 Year
  Sex: Female

DRUGS (2)
  1. DUPIXENT [Suspect]
     Active Substance: DUPILUMAB
     Indication: Dermatitis atopic
     Dosage: UNK, Q15D
     Route: 058
     Dates: start: 20210409, end: 20210821
  2. COMIRNATY [Suspect]
     Active Substance: TOZINAMERAN
     Dosage: UNKNOWN
     Route: 030
     Dates: start: 20210625, end: 20210625

REACTIONS (2)
  - Cerebral venous sinus thrombosis [Recovering/Resolving]
  - Off label use [Unknown]

NARRATIVE: CASE EVENT DATE: 20210409
